FAERS Safety Report 11354612 (Version 1)
Quarter: 2015Q3

REPORT INFORMATION
  Report Type: Spontaneous
  Country: US (occurrence: US)
  Receive Date: 20150807
  Receipt Date: 20150807
  Transmission Date: 20151125
  Serious: No
  Sender: FDA-Public Use
  Company Number: US-JNJFOC-20150614032

PATIENT
  Age: 60 Year
  Sex: Male
  Weight: 84.37 kg

DRUGS (3)
  1. MENS ROGAINE EXTRA STRENGTH [Suspect]
     Active Substance: MINOXIDIL
     Route: 061
  2. MENS ROGAINE EXTRA STRENGTH [Suspect]
     Active Substance: MINOXIDIL
     Indication: ALOPECIA
     Route: 061
     Dates: start: 20150615, end: 20150617
  3. BIOTIN [Suspect]
     Active Substance: BIOTIN
     Indication: HAIR GROWTH ABNORMAL
     Route: 065

REACTIONS (2)
  - Pruritus [Recovering/Resolving]
  - Skin irritation [Recovering/Resolving]

NARRATIVE: CASE EVENT DATE: 20150615
